FAERS Safety Report 23644538 (Version 1)
Quarter: 2024Q1

REPORT INFORMATION
  Report Type: Spontaneous
  Country: MY (occurrence: MY)
  Receive Date: 20240318
  Receipt Date: 20240318
  Transmission Date: 20240410
  Serious: Yes (Death)
  Sender: FDA-Public Use
  Company Number: MY-BoehringerIngelheim-2024-BI-015476

PATIENT
  Age: 7 Decade
  Sex: Male

DRUGS (1)
  1. PRAXBIND [Suspect]
     Active Substance: IDARUCIZUMAB
     Indication: Procoagulant therapy
     Dosage: FORM STRENGTH: 5 GRAM
     Dates: start: 20240117

REACTIONS (1)
  - Haemorrhage [Fatal]
